FAERS Safety Report 9159475 (Version 1)
Quarter: 2013Q1

REPORT INFORMATION
  Report Type: Spontaneous
  Country: DE (occurrence: None)
  Receive Date: 20130215
  Receipt Date: 20130215
  Transmission Date: 20140127
  Serious: Yes (Other)
  Sender: FDA-Public Use
  Company Number: GER/GER/13/0027901

PATIENT
  Age: 25 Year
  Sex: Female
  Weight: 60 kg

DRUGS (5)
  1. CIPROBETA [Suspect]
     Route: 048
     Dates: start: 20130207, end: 20130207
  2. IBU [Suspect]
     Route: 048
     Dates: start: 20130207, end: 20130207
  3. SHAFA-ACETAMINOPHEN-CODEIN [Suspect]
     Route: 048
     Dates: start: 20130207, end: 20130207
  4. ANTIHISTAMINE [Suspect]
     Route: 048
     Dates: start: 20130207, end: 20130207
  5. UNSPECIFIED INGREDIENT [Suspect]
     Route: 048
     Dates: start: 20130207, end: 20130207

REACTIONS (3)
  - Nausea [None]
  - Vomiting [None]
  - Intentional overdose [None]
